FAERS Safety Report 9994584 (Version 1)
Quarter: 2014Q1

REPORT INFORMATION
  Report Type: Spontaneous
  Country: US (occurrence: US)
  Receive Date: 20140311
  Receipt Date: 20140311
  Transmission Date: 20141002
  Serious: Yes (Hospitalization)
  Sender: FDA-Public Use
  Company Number: US-BRISTOL-MYERS SQUIBB COMPANY-20418679

PATIENT
  Age: 33 Year
  Sex: Male
  Weight: 87.1 kg

DRUGS (12)
  1. ABILIFY TABS 15 MG [Suspect]
     Indication: SCHIZOPHRENIA
     Dosage: ON 07JAN14 DOSE INCREASED TO 10MG
     Route: 048
     Dates: start: 20131022
  2. ABILIFY MAINTENA INJECTION [Suspect]
     Indication: SCHIZOPHRENIA
     Dosage: 10DEC13:14DEC13:5D
     Route: 030
     Dates: start: 20131210, end: 20140107
  3. BACTRIM [Concomitant]
  4. VITAMIN D3 [Concomitant]
     Dates: start: 20130719
  5. FLUTICASONE [Concomitant]
     Dosage: SPRAY
     Route: 045
     Dates: start: 20130529
  6. LORATADINE [Concomitant]
     Dates: start: 20130923
  7. PAROXETINE [Concomitant]
     Dates: start: 20130820
  8. DIVALPROEX [Concomitant]
     Dates: start: 20130529
  9. PROPRANOLOL [Concomitant]
     Dates: start: 20130529
  10. OLANZAPINE [Concomitant]
     Dates: start: 20131001
  11. CHLORPROMAZINE [Concomitant]
     Dates: start: 20131001
  12. RANITIDINE [Concomitant]
     Dates: start: 20131120

REACTIONS (7)
  - Pleural effusion [Unknown]
  - Pneumonia [Unknown]
  - Atelectasis [Unknown]
  - Tachycardia [Unknown]
  - Hypoxia [Unknown]
  - Pyrexia [Unknown]
  - Schizophrenia [Unknown]
